FAERS Safety Report 17551043 (Version 1)
Quarter: 2020Q1

REPORT INFORMATION
  Report Type: Spontaneous
  Country: US (occurrence: US)
  Receive Date: 20200309
  Receipt Date: 20200309
  Transmission Date: 20200409
  Serious: No
  Sender: FDA-Public Use
  Company Number: None

PATIENT
  Age: 5 Year

DRUGS (2)
  1. RASUVO [Suspect]
     Active Substance: METHOTREXATE SODIUM
     Indication: POLYMYOSITIS
     Dosage: OTHER
     Route: 058
     Dates: start: 202003
  2. RASUVO [Suspect]
     Active Substance: METHOTREXATE SODIUM
     Indication: DERMATOMYOSITIS
     Dosage: OTHER
     Route: 058
     Dates: start: 202003

REACTIONS (2)
  - Dermatomyositis [None]
  - Off label use [None]

NARRATIVE: CASE EVENT DATE: 20200309
